FAERS Safety Report 8351903-7 (Version None)
Quarter: 2012Q2

REPORT INFORMATION
  Report Type: 
  Country: None (occurrence: None)
  Receive Date: 20120511
  Receipt Date: 20120504
  Transmission Date: 20120825
  Serious: No
  Sender: FDA-Public Use
  Company Number: US-PFIZER INC-2012110150

PATIENT
  Sex: Female

DRUGS (3)
  1. SYNTHROID [Concomitant]
     Dosage: UNK
  2. PLAQUENIL [Concomitant]
     Dosage: UNK
  3. METHOTREXATE SODIUM [Suspect]
     Dosage: UNK

REACTIONS (2)
  - WOUND [None]
  - JOINT STIFFNESS [None]
